FAERS Safety Report 4580043-8 (Version None)
Quarter: 2005Q1

REPORT INFORMATION
  Report Type: 
  Country: None (occurrence: None)
  Receive Date: 20050214
  Receipt Date: 20050114
  Transmission Date: 20050727
  Serious: Yes (Hospitalization, Other)
  Sender: FDA-Public Use
  Company Number: FR-MERCK-0501USA02740

PATIENT
  Age: 55 Year
  Sex: Male

DRUGS (7)
  1. ELSPAR [Suspect]
     Indication: NON-HODGKIN'S LYMPHOMA
     Route: 042
     Dates: start: 19900101
  2. CYCLOPHOSPHAMIDE [Suspect]
     Indication: NON-HODGKIN'S LYMPHOMA
     Route: 065
     Dates: start: 19890101
  3. VINCRISTINE SULFATE [Suspect]
     Indication: NON-HODGKIN'S LYMPHOMA
     Route: 065
     Dates: start: 19890101
  4. PREDNISONE [Suspect]
     Indication: NON-HODGKIN'S LYMPHOMA
     Route: 065
     Dates: start: 19890101
  5. ADRIBLASTINE [Concomitant]
     Indication: NON-HODGKIN'S LYMPHOMA
     Route: 065
  6. RUBIDAZONE [Concomitant]
     Indication: NON-HODGKIN'S LYMPHOMA
     Route: 065
  7. ARACYTINE [Concomitant]
     Indication: NON-HODGKIN'S LYMPHOMA
     Route: 065

REACTIONS (14)
  - AGRANULOCYTOSIS [None]
  - CHOLESTASIS [None]
  - COMA [None]
  - DIABETES MELLITUS NON-INSULIN-DEPENDENT [None]
  - ELECTROENCEPHALOGRAM ABNORMAL [None]
  - HEPATIC STEATOSIS [None]
  - HYPERLIPIDAEMIA [None]
  - INTRACRANIAL PRESSURE INCREASED [None]
  - PANCREATIC PSEUDOCYST [None]
  - PANCREATITIS HAEMORRHAGIC [None]
  - PANCREATITIS NECROTISING [None]
  - SPLENIC VEIN THROMBOSIS [None]
  - STUPOR [None]
  - VARICES OESOPHAGEAL [None]
